FAERS Safety Report 24142006 (Version 2)
Quarter: 2025Q3

REPORT INFORMATION
  Report Type: Spontaneous
  Country: US (occurrence: US)
  Receive Date: 20240726
  Receipt Date: 20250725
  Transmission Date: 20251021
  Serious: Yes (Hospitalization)
  Sender: SK LIFE SCIENCE
  Company Number: US-SK LIFE SCIENCE, INC.-SKPVG-2024-001635

PATIENT

DRUGS (16)
  1. XCOPRI [Suspect]
     Active Substance: CENOBAMATE
     Indication: Seizure
     Route: 065
  2. XCOPRI [Suspect]
     Active Substance: CENOBAMATE
     Route: 065
  3. XCOPRI [Suspect]
     Active Substance: CENOBAMATE
     Route: 065
  4. XCOPRI [Suspect]
     Active Substance: CENOBAMATE
     Route: 065
  5. XCOPRI [Suspect]
     Active Substance: CENOBAMATE
     Dosage: 300MG TOTAL DOSE DAILY, (100MG THREE TIMES A DAY)
     Route: 065
  6. XCOPRI [Suspect]
     Active Substance: CENOBAMATE
     Dosage: 400 MILLIGRAM, ONCE DAILY
     Route: 065
  7. CLONAZEPAM [Concomitant]
     Active Substance: CLONAZEPAM
     Indication: Seizure
     Route: 065
  8. FOLIC ACID [Concomitant]
     Active Substance: FOLIC ACID
     Indication: Product used for unknown indication
     Route: 065
  9. LANSOPRAZOLE [Concomitant]
     Active Substance: LANSOPRAZOLE
     Indication: Product used for unknown indication
     Route: 065
  10. KEPPRA [Concomitant]
     Active Substance: LEVETIRACETAM
     Indication: Seizure
     Route: 065
  11. VITAMINS [Concomitant]
     Active Substance: VITAMINS
     Indication: Product used for unknown indication
     Route: 065
  12. SCOPOLAMINE [Concomitant]
     Active Substance: SCOPOLAMINE
     Indication: Product used for unknown indication
     Route: 065
  13. ONDANSETRON [Concomitant]
     Active Substance: ONDANSETRON
     Indication: Product used for unknown indication
     Route: 065
  14. VALPROATE [Concomitant]
     Active Substance: VALPROIC ACID
     Indication: Product used for unknown indication
     Route: 065
  15. VALPROIC ACID [Concomitant]
     Active Substance: VALPROIC ACID
     Indication: Seizure
     Route: 065
  16. LAMOTRIGINE [Concomitant]
     Active Substance: LAMOTRIGINE
     Indication: Seizure
     Route: 065

REACTIONS (5)
  - Seizure [Recovered/Resolved]
  - Seizure [Recovered/Resolved]
  - Drug titration error [Unknown]
  - Vomiting [Recovered/Resolved]
  - Vomiting [Recovered/Resolved]

NARRATIVE: CASE EVENT DATE: 20250704
